FAERS Safety Report 14273570 (Version 2)
Quarter: 2018Q1

REPORT INFORMATION
  Report Type: Spontaneous
  Country: NO (occurrence: NO)
  Receive Date: 20171211
  Receipt Date: 20180202
  Transmission Date: 20180508
  Serious: Yes (Life-Threatening, Congenital Anomaly, Other)
  Sender: FDA-Public Use
  Company Number: NO-OTSUKA-2016_001158AA

PATIENT
  Age: 0 Day
  Sex: Female

DRUGS (1)
  1. ABILIFY [Suspect]
     Active Substance: ARIPIPRAZOLE
     Indication: PRODUCT USED FOR UNKNOWN INDICATION
     Dosage: UNK(THE MOTHER HAD BEEN TAKING ABILIFY AGAINST PSYCHOSIS DURING PREGNANCY FOR MONTHS)
     Route: 064
     Dates: end: 20151223

REACTIONS (6)
  - Neonatal respiratory failure [Recovered/Resolved]
  - Neonatal asphyxia [Recovered/Resolved]
  - Congenital pulmonary hypertension [Recovering/Resolving]
  - Drug withdrawal syndrome neonatal [Recovering/Resolving]
  - Foetal exposure during pregnancy [Recovered/Resolved]
  - Salivary hypersecretion [Recovered/Resolved]

NARRATIVE: CASE EVENT DATE: 20151223
